FAERS Safety Report 11647200 (Version 1)
Quarter: 2015Q4

REPORT INFORMATION
  Report Type: Spontaneous
  Country: IN (occurrence: IN)
  Receive Date: 20151021
  Receipt Date: 20151021
  Transmission Date: 20160304
  Serious: No
  Sender: FDA-Public Use
  Company Number: IN-LUPIN PHARMACEUTICALS INC.-E2B_00003823

PATIENT

DRUGS (4)
  1. LIPRIL [Suspect]
     Active Substance: LISINOPRIL
     Indication: HYPERTENSION
     Route: 065
  2. LOSARTAN SODIUM [Suspect]
     Active Substance: LOSARTAN
     Indication: HYPERTENSION
     Dosage: DAILY
     Route: 065
  3. LOSARTAN SODIUM [Suspect]
     Active Substance: LOSARTAN
     Dosage: ON AN ALTERNATE DAY
     Route: 065
  4. LIPRIL [Suspect]
     Active Substance: LISINOPRIL
     Route: 065

REACTIONS (3)
  - Acne [Not Recovered/Not Resolved]
  - Drug dose omission [Unknown]
  - Blister [Not Recovered/Not Resolved]
